FAERS Safety Report 25995731 (Version 1)
Quarter: 2025Q4

REPORT INFORMATION
  Report Type: Spontaneous
  Country: US (occurrence: None)
  Receive Date: 20251103
  Receipt Date: 20251103
  Transmission Date: 20260117
  Serious: Yes (Hospitalization)
  Sender: FDA-CTU
  Company Number: None

PATIENT
  Age: 49 Year
  Sex: Female

DRUGS (3)
  1. WEZLANA [Suspect]
     Active Substance: USTEKINUMAB-AUUB
     Dosage: FREQUENCY : MONTHLY;?
  2. STELARA [Suspect]
     Active Substance: USTEKINUMAB
  3. RINVOQ [Suspect]
     Active Substance: UPADACITINIB

REACTIONS (2)
  - Crohn^s disease [None]
  - Product substitution issue [None]
